FAERS Safety Report 9801811 (Version 1)
Quarter: 2014Q1

REPORT INFORMATION
  Report Type: Spontaneous
  Country: US (occurrence: US)
  Receive Date: 20140107
  Receipt Date: 20140107
  Transmission Date: 20141002
  Serious: No
  Sender: FDA-Public Use
  Company Number: US-GE HEALTHCARE MEDICAL DIAGNOSTICS-OMPQ-PR-1307S-0946

PATIENT
  Age: 70 Year
  Sex: Male

DRUGS (2)
  1. OMNIPAQUE [Suspect]
     Indication: RENAL CYST
     Route: 042
     Dates: start: 20130724, end: 20130724
  2. OMNIPAQUE [Suspect]
     Indication: DIAGNOSTIC PROCEDURE

REACTIONS (2)
  - Sneezing [Recovered/Resolved]
  - Eye pruritus [Recovered/Resolved]
